FAERS Safety Report 19431041 (Version 1)
Quarter: 2021Q2

REPORT INFORMATION
  Report Type: Spontaneous
  Country: US (occurrence: US)
  Receive Date: 20210618
  Receipt Date: 20210618
  Transmission Date: 20210717
  Serious: No
  Sender: FDA-Public Use
  Company Number: US-ROCHE-2757787

PATIENT
  Sex: Male
  Weight: 61.29 kg

DRUGS (6)
  1. ACTEMRA [Suspect]
     Active Substance: TOCILIZUMAB
  2. ACTEMRA [Suspect]
     Active Substance: TOCILIZUMAB
  3. PREDNISOLONE. [Concomitant]
     Active Substance: PREDNISOLONE
     Indication: GIANT CELL ARTERITIS
     Dosage: STARTED AT 100MG DAILY AND TAPERED TO 5 MG DAILY
     Route: 048
     Dates: start: 20200702
  4. ACTEMRA [Suspect]
     Active Substance: TOCILIZUMAB
     Indication: GIANT CELL ARTERITIS
     Route: 058
     Dates: start: 202012, end: 202101
  5. ACTEMRA [Suspect]
     Active Substance: TOCILIZUMAB
  6. ACTEMRA [Suspect]
     Active Substance: TOCILIZUMAB
     Indication: GIANT CELL ARTERITIS
     Route: 058
     Dates: start: 202101

REACTIONS (3)
  - Exposure via direct contact [Unknown]
  - No adverse event [Unknown]
  - Device issue [Unknown]
